FAERS Safety Report 6880860-5 (Version None)
Quarter: 2010Q3

REPORT INFORMATION
  Report Type: 
  Country: None (occurrence: None)
  Receive Date: 20100728
  Receipt Date: 20100720
  Transmission Date: 20110219
  Serious: Yes (Hospitalization, Other)
  Sender: FDA-Public Use
  Company Number: FR-BRISTOL-MYERS SQUIBB COMPANY-15204597

PATIENT
  Sex: Female

DRUGS (5)
  1. COUMADIN [Suspect]
     Indication: THROMBOPHLEBITIS
     Route: 048
  2. PERINDOPRIL ERBUMINE [Concomitant]
     Indication: HYPERTENSION
     Route: 048
  3. SMECTA [Concomitant]
     Route: 048
  4. FUROSEMIDE [Concomitant]
     Indication: HYPERTENSION
     Route: 048
  5. NITRODERM [Concomitant]
     Route: 062

REACTIONS (6)
  - DUODENITIS [None]
  - GASTRITIS [None]
  - HAEMOGLOBIN DECREASED [None]
  - INTERNATIONAL NORMALISED RATIO INCREASED [None]
  - MELAENA [None]
  - OESOPHAGITIS [None]
